FAERS Safety Report 16739244 (Version 1)
Quarter: 2019Q3

REPORT INFORMATION
  Report Type: Spontaneous
  Country: GB (occurrence: GB)
  Receive Date: 20190826
  Receipt Date: 20190826
  Transmission Date: 20191005
  Serious: Yes (Hospitalization, Disabling)
  Sender: FDA-Public Use
  Company Number: GB-TEVA-2019-GB-1096195

PATIENT
  Age: 82 Year
  Sex: Female

DRUGS (11)
  1. FOLIC ACID. [Concomitant]
     Active Substance: FOLIC ACID
  2. ADCAL-D3 [Concomitant]
     Active Substance: CALCIUM CARBONATE\CHOLECALCIFEROL
  3. ACETYLSALICYLIC ACID [Concomitant]
     Active Substance: ASPIRIN
  4. ATENOLOL. [Concomitant]
     Active Substance: ATENOLOL
  5. FUROSEMIDE. [Concomitant]
     Active Substance: FUROSEMIDE
  6. TRAMADOL. [Concomitant]
     Active Substance: TRAMADOL
  7. OMEPRAZOLE. [Concomitant]
     Active Substance: OMEPRAZOLE
  8. CARBOMER 980 [Concomitant]
     Active Substance: CARBOMER HOMOPOLYMER TYPE C (ALLYL PENTAERYTHRITOL CROSSLINKED)
  9. DULOXETINE. [Concomitant]
     Active Substance: DULOXETINE
  10. ALENDRONIC ACID [Suspect]
     Active Substance: ALENDRONIC ACID
     Indication: OSTEOPOROSIS
     Dosage: 70 MILLIGRAM
     Route: 048
  11. PARACETAMOL [Concomitant]
     Active Substance: ACETAMINOPHEN

REACTIONS (1)
  - Femoral neck fracture [Recovering/Resolving]
